FAERS Safety Report 20433960 (Version 1)
Quarter: 2022Q1

REPORT INFORMATION
  Report Type: Spontaneous
  Country: JP (occurrence: JP)
  Receive Date: 20220205
  Receipt Date: 20220205
  Transmission Date: 20220423
  Serious: Yes (Disabling, Other)
  Sender: FDA-Public Use
  Company Number: JP-BAYER-2021A269898

PATIENT

DRUGS (6)
  1. EYLEA [Suspect]
     Active Substance: AFLIBERCEPT
     Indication: Retinal vein occlusion
     Dosage: 2 MG, ONCE (LEFT EYE), 40 MG/ML
     Route: 031
     Dates: start: 20210928, end: 20210928
  2. EYLEA [Suspect]
     Active Substance: AFLIBERCEPT
     Dosage: 2 MG, ONCE (LEFT EYE), 40 MG/ML
     Route: 031
     Dates: start: 20211130, end: 20211130
  3. XYLOCAINE                          /00033401/ [Concomitant]
     Indication: Anaesthetic ophthalmic procedure
     Dosage: 0.3 ML
     Route: 047
  4. LEVOFLOXACIN HEMIHYDRATE [Concomitant]
     Active Substance: LEVOFLOXACIN
     Indication: Cataract operation
     Dosage: 3 TIMES A DAY, BOTH EYES
     Route: 047
     Dates: start: 20210902, end: 20211124
  5. FLUOROMETHOLONE [Concomitant]
     Active Substance: FLUOROMETHOLONE
     Indication: Cataract operation
     Dosage: 3 TIMES A DAY, BOTH EYES
     Route: 047
     Dates: start: 20210902, end: 20211124
  6. DICLOFENAC SODIUM [Concomitant]
     Active Substance: DICLOFENAC SODIUM
     Indication: Cataract operation
     Dosage: 3 TIMES A DAY, BOTH EYES
     Route: 047
     Dates: start: 20210902

REACTIONS (5)
  - Retinal degeneration [Not Recovered/Not Resolved]
  - Retinal artery occlusion [Not Recovered/Not Resolved]
  - Visual impairment [Not Recovered/Not Resolved]
  - Visual acuity reduced [Not Recovered/Not Resolved]
  - Visual field defect [Not Recovered/Not Resolved]

NARRATIVE: CASE EVENT DATE: 20211203
